FAERS Safety Report 6668381-6 (Version None)
Quarter: 2010Q2

REPORT INFORMATION
  Report Type: 
  Country: None (occurrence: None)
  Receive Date: 20100406
  Receipt Date: 20100325
  Transmission Date: 20101027
  Serious: Yes (Other)
  Sender: FDA-Public Use
  Company Number: US-JNJFOC-20100305443

PATIENT
  Sex: Male
  Weight: 94 kg

DRUGS (9)
  1. USTEKINUMAB [Suspect]
     Route: 058
  2. USTEKINUMAB [Suspect]
     Indication: PSORIASIS
     Route: 058
  3. MULTI-VITAMINS [Concomitant]
     Indication: NUTRITIONAL SUPPORT
     Route: 048
  4. EXCEDRIN (MIGRAINE) [Concomitant]
     Indication: ARTHRITIS
     Route: 048
  5. URSODIOL [Concomitant]
     Indication: LIVER DISORDER
     Route: 048
  6. SULFAMETHOXAZOLE AND TRIMETHOPRIM [Concomitant]
     Indication: LIVER DISORDER
     Route: 048
  7. PREDNISONE TAB [Concomitant]
     Indication: LIVER DISORDER
     Route: 048
  8. OMEPRAZOLE [Concomitant]
     Indication: GASTROINTESTINAL ULCER
     Route: 048
  9. FUROSEMIDE [Concomitant]
     Indication: FLUID RETENTION
     Route: 048

REACTIONS (2)
  - ABDOMINAL CAVITY DRAINAGE [None]
  - LIVER FUNCTION TEST ABNORMAL [None]
